FAERS Safety Report 7994715-6 (Version None)
Quarter: 2011Q4

REPORT INFORMATION
  Report Type: 
  Country: None (occurrence: None)
  Receive Date: 20111220
  Receipt Date: 20110819
  Transmission Date: 20120403
  Serious: No
  Sender: FDA-Public Use
  Company Number: US-BAYER-2011-076085

PATIENT
  Sex: Female

DRUGS (3)
  1. MOBIC [Concomitant]
  2. DETROL [Concomitant]
  3. AVELOX [Suspect]
     Indication: PNEUMONIA
     Dosage: 400 MG, QD
     Route: 048
     Dates: start: 20110204, end: 20110213

REACTIONS (2)
  - MOUTH ULCERATION [None]
  - FOOD ALLERGY [None]
